FAERS Safety Report 5092366-7 (Version None)
Quarter: 2006Q3

REPORT INFORMATION
  Report Type: 
  Country: None (occurrence: None)
  Receive Date: 20060825
  Receipt Date: 20060807
  Transmission Date: 20061208
  Serious: Yes (Hospitalization, Other)
  Sender: FDA-Public Use
  Company Number: US200607001339

PATIENT
  Sex: Female
  Weight: 131.5 kg

DRUGS (1)
  1. ZYPREXA [Suspect]
     Dosage: 20 MG, DAILY (1/D)
     Dates: start: 20040101, end: 20051001

REACTIONS (6)
  - DIABETES MELLITUS [None]
  - HYPERPHAGIA [None]
  - HYPERTENSION [None]
  - OBESITY [None]
  - THROMBOSIS [None]
  - WEIGHT DECREASED [None]
